FAERS Safety Report 19048759 (Version 7)
Quarter: 2021Q3

REPORT INFORMATION
  Report Type: Report from Study
  Country: US (occurrence: US)
  Receive Date: 20210323
  Receipt Date: 20210818
  Transmission Date: 20211014
  Serious: No
  Sender: FDA-Public Use
  Company Number: NVSC2021US063138

PATIENT
  Age: 64 Year
  Sex: Female

DRUGS (4)
  1. PIQRAY [Suspect]
     Active Substance: ALPELISIB
     Indication: BREAST CANCER
     Dosage: 300 MG, QD,
     Route: 048
  2. PIQRAY [Suspect]
     Active Substance: ALPELISIB
     Dosage: 250 MG
     Route: 048
     Dates: start: 20210527
  3. PIQRAY [Suspect]
     Active Substance: ALPELISIB
     Route: 048
  4. PIQRAY [Suspect]
     Active Substance: ALPELISIB
     Dosage: 200 MG, QD
     Route: 048
     Dates: start: 20210809

REACTIONS (16)
  - Oral pain [Recovering/Resolving]
  - Insomnia [Recovering/Resolving]
  - Product availability issue [Unknown]
  - Fall [Recovering/Resolving]
  - Weight decreased [Unknown]
  - Eating disorder [Recovering/Resolving]
  - Blister [Recovering/Resolving]
  - Hyperglycaemia [Recovering/Resolving]
  - Asthenia [Recovering/Resolving]
  - Nausea [Unknown]
  - Oral discomfort [Recovering/Resolving]
  - Blood potassium decreased [Unknown]
  - Diarrhoea [Recovering/Resolving]
  - Tongue disorder [Unknown]
  - Glycosylated haemoglobin increased [Unknown]
  - Fatigue [Unknown]

NARRATIVE: CASE EVENT DATE: 20210402
